FAERS Safety Report 9880915 (Version 1)
Quarter: 2014Q1

REPORT INFORMATION
  Report Type: Spontaneous
  Country: AR (occurrence: None)
  Receive Date: 20140205
  Receipt Date: 20140205
  Transmission Date: 20141002
  Serious: Yes (Disabling, Congenital Anomaly)
  Sender: FDA-Public Use
  Company Number: DAV-AE-MTX-14-03

PATIENT
  Age: 39 Week
  Sex: Male

DRUGS (1)
  1. METHOTREXATE [Suspect]
     Indication: FOETAL EXPOSURE DURING PREGNANCY

REACTIONS (3)
  - Maternal drugs affecting foetus [None]
  - Trisomy 21 [None]
  - Atrioventricular septal defect [None]
